FAERS Safety Report 19867511 (Version 1)
Quarter: 2021Q3

REPORT INFORMATION
  Report Type: Spontaneous
  Country: US (occurrence: US)
  Receive Date: 20210922
  Receipt Date: 20210922
  Transmission Date: 20211014
  Serious: Yes (Hospitalization, Other)
  Sender: FDA-Public Use
  Company Number: US-SA-2021SA311501

PATIENT
  Age: 50 Year
  Sex: Female

DRUGS (1)
  1. DUPIXENT [Suspect]
     Active Substance: DUPILUMAB
     Indication: DERMATITIS ATOPIC
     Dosage: UNK UNK, QOW
     Route: 058
     Dates: start: 202105

REACTIONS (7)
  - Dry skin [Unknown]
  - Pericardial effusion [Recovered/Resolved]
  - Skin exfoliation [Unknown]
  - Dyspnoea [Unknown]
  - Pleural effusion [Recovered/Resolved]
  - Chest pain [Unknown]
  - Pruritus [Unknown]

NARRATIVE: CASE EVENT DATE: 2021
